FAERS Safety Report 5738761-1 (Version None)
Quarter: 2008Q2

REPORT INFORMATION
  Report Type: 
  Country: None (occurrence: None)
  Receive Date: 20080515
  Receipt Date: 20080222
  Transmission Date: 20081010
  Serious: No
  Sender: FDA-Public Use
  Company Number: A0708109A

PATIENT
  Age: 19 Year
  Sex: Female
  Weight: 54.5 kg

DRUGS (2)
  1. VERAMYST [Suspect]
     Dosage: 27.5MCG TWICE PER DAY
     Route: 045
     Dates: start: 20071203, end: 20071210
  2. ORAL CONTRACEPTIVE [Concomitant]

REACTIONS (1)
  - DRY SKIN [None]
